FAERS Safety Report 6650884-1 (Version None)
Quarter: 2010Q1

REPORT INFORMATION
  Report Type: 
  Country: None (occurrence: None)
  Receive Date: 20100325
  Receipt Date: 20100223
  Transmission Date: 20100710
  Serious: No
  Sender: FDA-Public Use
  Company Number: US-BIOGENIDEC-2010BI007819

PATIENT
  Age: 37 Year
  Sex: Female

DRUGS (2)
  1. TYSABRI [Suspect]
     Indication: MULTIPLE SCLEROSIS
     Route: 042
     Dates: start: 20090202
  2. ZANAFLEX [Concomitant]
     Indication: PAIN IN EXTREMITY

REACTIONS (3)
  - CONTUSION [None]
  - DRUG INEFFECTIVE [None]
  - PAIN IN EXTREMITY [None]
